FAERS Safety Report 8882227 (Version 1)
Quarter: 2012Q4

REPORT INFORMATION
  Report Type: Report from Study
  Country: CO (occurrence: CO)
  Receive Date: 20121105
  Receipt Date: 20121105
  Transmission Date: 20130627
  Serious: Yes (Hospitalization)
  Sender: FDA-Public Use
  Company Number: CO-JNJFOC-20121101059

PATIENT
  Age: 72 Year
  Sex: Female
  Weight: 85 kg

DRUGS (1)
  1. XARELTO [Suspect]
     Indication: HIP ARTHROPLASTY
     Route: 048
     Dates: start: 20101202, end: 20101206

REACTIONS (2)
  - Oedema peripheral [Recovering/Resolving]
  - Pain in extremity [Recovering/Resolving]
